FAERS Safety Report 15096994 (Version 1)
Quarter: 2018Q3

REPORT INFORMATION
  Report Type: Spontaneous
  Country: US (occurrence: US)
  Receive Date: 20180702
  Receipt Date: 20180702
  Transmission Date: 20181010
  Serious: No
  Sender: FDA-Public Use
  Company Number: US-GLAXOSMITHKLINE-US2018115132

PATIENT
  Age: 54 Year
  Sex: Female

DRUGS (9)
  1. WELLBUTRIN ER [Concomitant]
  2. LEVALBUTEROL. [Concomitant]
     Active Substance: LEVALBUTEROL
  3. TRAZODONE [Concomitant]
     Active Substance: TRAZODONE HYDROCHLORIDE
  4. QVAR [Concomitant]
     Active Substance: BECLOMETHASONE DIPROPIONATE
  5. SOLU?MEDROL [Concomitant]
     Active Substance: METHYLPREDNISOLONE SODIUM SUCCINATE
  6. NUCALA [Suspect]
     Active Substance: MEPOLIZUMAB
     Indication: EOSINOPHILIC GRANULOMATOSIS WITH POLYANGIITIS
     Dosage: UNK UNK, CYC
     Route: 058
     Dates: start: 20180618
  7. PREDNISONE. [Concomitant]
     Active Substance: PREDNISONE
  8. DIAZEPAM. [Concomitant]
     Active Substance: DIAZEPAM
  9. BACLOFEN. [Concomitant]
     Active Substance: BACLOFEN

REACTIONS (25)
  - Influenza [Not Recovered/Not Resolved]
  - Head discomfort [Unknown]
  - Lethargy [Unknown]
  - Oral discomfort [Unknown]
  - Bone pain [Unknown]
  - Feeling abnormal [Unknown]
  - Vision blurred [Unknown]
  - Migraine [Unknown]
  - Dizziness [Unknown]
  - Ocular discomfort [Unknown]
  - Back pain [Unknown]
  - Oxygen saturation decreased [Unknown]
  - Feeling of body temperature change [Unknown]
  - Nausea [Unknown]
  - Fatigue [Unknown]
  - Throat irritation [Unknown]
  - Tongue discomfort [Unknown]
  - Paraesthesia oral [Unknown]
  - Swelling face [Unknown]
  - Muscle spasms [Unknown]
  - Muscular weakness [Unknown]
  - Chest pain [Unknown]
  - Somnolence [Unknown]
  - Eyelid ptosis [Unknown]
  - Lung disorder [Unknown]

NARRATIVE: CASE EVENT DATE: 201806
